FAERS Safety Report 19796877 (Version 2)
Quarter: 2021Q3

REPORT INFORMATION
  Report Type: Spontaneous
  Country: US (occurrence: US)
  Receive Date: 20210906
  Receipt Date: 20210906
  Transmission Date: 20211014
  Serious: Yes (Death, Other)
  Sender: FDA-Public Use
  Company Number: US-PFIZER INC-202101132416

PATIENT
  Age: 76 Year
  Sex: Female

DRUGS (11)
  1. TRAZODONE [Suspect]
     Active Substance: TRAZODONE HYDROCHLORIDE
     Dosage: UNK
  2. GABAPENTIN. [Suspect]
     Active Substance: GABAPENTIN
     Dosage: UNK
  3. NICOTINE. [Suspect]
     Active Substance: NICOTINE
     Dosage: UNK
  4. CODEINE [Suspect]
     Active Substance: CODEINE
     Dosage: UNK
  5. LAUDANOSINE [Suspect]
     Active Substance: ATRACURIUM
     Dosage: UNK
  6. THEBAINE [Suspect]
     Active Substance: THEBAINE
     Dosage: UNK
  7. MORPHINE [Suspect]
     Active Substance: MORPHINE
     Dosage: UNK
  8. HYDROMORPHONE HYDROCHLORIDE. [Suspect]
     Active Substance: HYDROMORPHONE HYDROCHLORIDE
     Dosage: UNK
  9. OMEPRAZOLE. [Suspect]
     Active Substance: OMEPRAZOLE
     Dosage: UNK
  10. CITALOPRAM [Suspect]
     Active Substance: CITALOPRAM HYDROBROMIDE
  11. CAFFEINE. [Suspect]
     Active Substance: CAFFEINE
     Dosage: UNK

REACTIONS (3)
  - Pneumonia [Fatal]
  - Emphysema [Fatal]
  - Toxicity to various agents [Fatal]
